FAERS Safety Report 13024370 (Version 2)
Quarter: 2017Q1

REPORT INFORMATION
  Report Type: Spontaneous
  Country: PL (occurrence: PL)
  Receive Date: 20161213
  Receipt Date: 20170116
  Transmission Date: 20170428
  Serious: Yes (Hospitalization)
  Sender: FDA-Public Use
  Company Number: PL-ALLERGAN-1680202US

PATIENT
  Age: 69 Year
  Sex: Female
  Weight: 98 kg

DRUGS (11)
  1. EMANERA [Concomitant]
     Indication: HELICOBACTER INFECTION
     Dosage: 1 DF, QD
     Route: 048
  2. BETASERC [Concomitant]
     Active Substance: BETAHISTINE
     Dosage: 1 DF, QD
  3. ACENOCUMAROL [Concomitant]
     Active Substance: ACENOCOUMAROL
     Indication: DIABETES MELLITUS
     Route: 058
  4. LANTUS [Concomitant]
     Active Substance: INSULIN GLARGINE
  5. NOVORAPID [Concomitant]
     Active Substance: INSULIN ASPART
  6. PYLERA [Suspect]
     Active Substance: BISMUTH SUBCITRATE POTASSIUM\METRONIDAZOLE\TETRACYCLINE HYDROCHLORIDE
     Dosage: 2 TABLETS, QID
     Route: 048
     Dates: start: 20141125
  7. PYLERA [Suspect]
     Active Substance: BISMUTH SUBCITRATE POTASSIUM\METRONIDAZOLE\TETRACYCLINE HYDROCHLORIDE
     Dosage: 2 TABLETS, TID
     Route: 048
     Dates: start: 201411
  8. VASILIP [Concomitant]
  9. NILOGRIN [Concomitant]
     Indication: HELICOBACTER INFECTION
     Dosage: 1 DF, QD
  10. BETALOK [Concomitant]
     Active Substance: METOPROLOL SUCCINATE
  11. PYLERA [Suspect]
     Active Substance: BISMUTH SUBCITRATE POTASSIUM\METRONIDAZOLE\TETRACYCLINE HYDROCHLORIDE
     Indication: HELICOBACTER INFECTION
     Dosage: 3 TABLETS, QID
     Route: 048
     Dates: start: 20141122, end: 20141124

REACTIONS (15)
  - Injection site extravasation [Unknown]
  - Intervertebral disc disorder [Unknown]
  - Mouth haemorrhage [Unknown]
  - Muscle haemorrhage [Unknown]
  - Peripheral motor neuropathy [Unknown]
  - Abdominal pain [Unknown]
  - Neurological symptom [Unknown]
  - Contusion [Unknown]
  - Vomiting [Unknown]
  - Monoparesis [Unknown]
  - International normalised ratio increased [Unknown]
  - Diabetes mellitus [Unknown]
  - Administration site extravasation [Unknown]
  - Bone marrow failure [Unknown]
  - Hyperaesthesia [Unknown]

NARRATIVE: CASE EVENT DATE: 20141122
